FAERS Safety Report 5464762-7 (Version None)
Quarter: 2007Q3

REPORT INFORMATION
  Report Type: 
  Country: None (occurrence: None)
  Receive Date: 20070921
  Receipt Date: 20070911
  Transmission Date: 20080115
  Serious: Yes (Hospitalization, Other)
  Sender: FDA-Public Use
  Company Number: JP-PFIZER INC-2007067845

PATIENT
  Sex: Female
  Weight: 47 kg

DRUGS (4)
  1. AROMASIN [Suspect]
     Indication: BREAST CANCER
     Route: 048
     Dates: start: 20050901, end: 20070801
  2. FURTULON [Concomitant]
     Route: 048
     Dates: start: 20050901, end: 20070801
  3. PERDIPINE [Concomitant]
     Indication: HYPERTENSION
     Route: 048
  4. HALCION [Concomitant]
     Indication: INSOMNIA
     Route: 048

REACTIONS (4)
  - CHOLANGITIS [None]
  - CHOLECYSTITIS [None]
  - CHOLELITHIASIS [None]
  - HEPATIC STEATOSIS [None]
